FAERS Safety Report 8538878-2 (Version None)
Quarter: 2012Q3

REPORT INFORMATION
  Report Type: 
  Country: None (occurrence: None)
  Receive Date: 20120716
  Receipt Date: 20120629
  Transmission Date: 20120928
  Serious: Yes (Other)
  Sender: FDA-Public Use
  Company Number: E2B_00000271

PATIENT
  Age: 61 Year
  Sex: Female
  Weight: 71.6683 kg

DRUGS (7)
  1. CARDIZEM [Concomitant]
  2. LABATELOL [Concomitant]
  3. CEFUROXIME AXETIL [Suspect]
     Indication: SINUSITIS
     Dosage: 1000 MG (500 MG, 2 IN 1 D), PER ORAL; 1000 MG (500 MG, 2 IN 1 D), PER ORAL
     Route: 048
     Dates: start: 20120608, end: 20120613
  4. CEFUROXIME AXETIL [Suspect]
     Indication: SINUSITIS
     Dosage: 1000 MG (500 MG, 2 IN 1 D), PER ORAL; 1000 MG (500 MG, 2 IN 1 D), PER ORAL
     Route: 048
     Dates: start: 20120619, end: 20120620
  5. LANSOPRAZOLE [Concomitant]
  6. SERTRALINE HYDROCHLORIDE [Concomitant]
  7. VYTORIN [Concomitant]

REACTIONS (8)
  - FEELING ABNORMAL [None]
  - SWELLING FACE [None]
  - HYPOAESTHESIA [None]
  - FACIAL PAIN [None]
  - SINUSITIS [None]
  - INFLAMMATION [None]
  - SINUS DISORDER [None]
  - BLOOD PRESSURE INCREASED [None]
